FAERS Safety Report 24740095 (Version 2)
Quarter: 2025Q4

REPORT INFORMATION
  Report Type: Spontaneous
  Country: US (occurrence: US)
  Receive Date: 20241216
  Receipt Date: 20251024
  Transmission Date: 20260117
  Serious: No
  Sender: CELLTRION
  Company Number: US-CELLTRION INC.-2024US027145

PATIENT

DRUGS (3)
  1. ZYMFENTRA [Suspect]
     Active Substance: INFLIXIMAB-DYYB
     Indication: Analgesic therapy
     Dosage: 120 MG EVERY 2 WEEKS
     Route: 030
     Dates: start: 20240928
  2. ZYMFENTRA [Suspect]
     Active Substance: INFLIXIMAB-DYYB
     Indication: Crohn^s disease
     Dosage: 120 MG EVERY 2 WEEKS
     Route: 030
     Dates: start: 20241012
  3. ZYMFENTRA [Suspect]
     Active Substance: INFLIXIMAB-DYYB
     Dosage: 120 MG EVERY 2 WEEKS
     Route: 030
     Dates: start: 20241026

REACTIONS (2)
  - Diarrhoea [Recovered/Resolved]
  - Intentional product use issue [Unknown]

NARRATIVE: CASE EVENT DATE: 20241011
